FAERS Safety Report 12128266 (Version 3)
Quarter: 2016Q1

REPORT INFORMATION
  Report Type: Report from Study
  Country: CA (occurrence: CA)
  Receive Date: 20160229
  Receipt Date: 20160327
  Transmission Date: 20160526
  Serious: Yes (Hospitalization)
  Sender: FDA-Public Use
  Company Number: CA-ABBVIE-16K-028-1567714-00

PATIENT
  Age: 69 Year
  Sex: Male

DRUGS (2)
  1. HUMIRA [Suspect]
     Active Substance: ADALIMUMAB
     Route: 058
     Dates: start: 20160226
  2. HUMIRA [Suspect]
     Active Substance: ADALIMUMAB
     Indication: CROHN^S DISEASE
     Route: 058
     Dates: start: 20090603, end: 201602

REACTIONS (1)
  - Hypophosphataemia [Recovered/Resolved]

NARRATIVE: CASE EVENT DATE: 20160219
